FAERS Safety Report 7763047-3 (Version None)
Quarter: 2011Q3

REPORT INFORMATION
  Report Type: 
  Country: None (occurrence: None)
  Receive Date: 20110920
  Receipt Date: 20110913
  Transmission Date: 20111222
  Serious: Yes (Hospitalization)
  Sender: FDA-Public Use
  Company Number: US-GENENTECH-324385

PATIENT
  Sex: Female

DRUGS (4)
  1. MEDICATION (UNK INGREDIENT) [Concomitant]
     Indication: CARDIAC DISORDER
  2. LUCENTIS [Suspect]
     Indication: PRODUCT USED FOR UNKNOWN INDICATION
     Dosage: UNK UNK, UNKNOWN
     Route: 065
     Dates: start: 20110823
  3. BLOOD PRESSURE MEDICATION NOS [Concomitant]
     Indication: HYPERTENSION
  4. ADVAIR DISKUS 100/50 [Suspect]
     Indication: ASTHMA
     Dosage: 1 PUFF, BID
     Route: 055
     Dates: start: 20110822, end: 20110824

REACTIONS (5)
  - HEADACHE [None]
  - HEART RATE INCREASED [None]
  - DRUG INTERACTION [None]
  - BLOOD PRESSURE INCREASED [None]
  - CHEST PAIN [None]
